FAERS Safety Report 23873510 (Version 1)
Quarter: 2024Q2

REPORT INFORMATION
  Report Type: Spontaneous
  Country: DE (occurrence: None)
  Receive Date: 20240520
  Receipt Date: 20240520
  Transmission Date: 20240716
  Serious: Yes (Other)
  Sender: FDA-Public Use
  Company Number: 2024A113719

PATIENT
  Sex: Male

DRUGS (1)
  1. TICAGRELOR [Suspect]
     Active Substance: TICAGRELOR
     Route: 048

REACTIONS (5)
  - Cholecystitis [Unknown]
  - Haemoglobin decreased [Unknown]
  - Loss of consciousness [Unknown]
  - Gastric haemorrhage [Unknown]
  - Melaena [Unknown]
